FAERS Safety Report 6224177-0 (Version None)
Quarter: 2009Q2

REPORT INFORMATION
  Report Type: 
  Country: None (occurrence: None)
  Receive Date: 20090612
  Receipt Date: 20090310
  Transmission Date: 20091009
  Serious: No
  Sender: FDA-Public Use
  Company Number: US-ABBOTT-09P-163-0561856-00

PATIENT
  Sex: Female
  Weight: 97.156 kg

DRUGS (6)
  1. HUMIRA [Suspect]
     Indication: RHEUMATOID ARTHRITIS
     Route: 048
     Dates: start: 20060101
  2. PREDNISONE [Concomitant]
     Indication: RHEUMATOID ARTHRITIS
     Route: 048
  3. LEFLUNOMIDE [Concomitant]
     Indication: RHEUMATOID ARTHRITIS
     Route: 048
  4. OXYBUTYNIN [Concomitant]
     Indication: URINARY INCONTINENCE
  5. VICODIN [Concomitant]
     Indication: PAIN
     Dosage: 5/500 MG AS NEEDED
  6. ACETAMINOPHEN [Concomitant]
     Indication: PAIN

REACTIONS (3)
  - ARTHRITIS [None]
  - PNEUMONIA [None]
  - WHEEZING [None]
